FAERS Safety Report 8294321-2 (Version None)
Quarter: 2012Q2

REPORT INFORMATION
  Report Type: 
  Country: None (occurrence: None)
  Receive Date: 20120418
  Receipt Date: 20120410
  Transmission Date: 20120825
  Serious: Yes (Other)
  Sender: FDA-Public Use
  Company Number: FR-SANOFI-AVENTIS-2012SA024735

PATIENT
  Age: 56 Year
  Sex: Female

DRUGS (1)
  1. ARAVA [Suspect]
     Route: 048
     Dates: start: 20081001, end: 20110201

REACTIONS (2)
  - BUNDLE BRANCH BLOCK LEFT [None]
  - CARDIOMYOPATHY [None]
